FAERS Safety Report 6786879-7 (Version None)
Quarter: 2010Q2

REPORT INFORMATION
  Report Type: 
  Country: None (occurrence: None)
  Receive Date: 20100621
  Receipt Date: 20100427
  Transmission Date: 20101027
  Serious: Yes (Hospitalization)
  Sender: FDA-Public Use
  Company Number: TR-000315

PATIENT
  Sex: Male
  Weight: 16 kg

DRUGS (4)
  1. NAGLAZYME [Suspect]
     Dosage: 15 MG 1X/WEEK INTRAVENOUS DRIP
     Route: 041
     Dates: start: 20080301
  2. OTHER ANTIINFLAMMATORY AGENTS IN COMB. [Concomitant]
  3. RANITIDINE [Concomitant]
  4. ACETAMINOPHEN [Concomitant]

REACTIONS (2)
  - GASTRIC HAEMORRHAGE [None]
  - GASTRITIS [None]
